FAERS Safety Report 16877855 (Version 5)
Quarter: 2019Q4

REPORT INFORMATION
  Report Type: Spontaneous
  Country: US (occurrence: US)
  Receive Date: 20191002
  Receipt Date: 20191209
  Transmission Date: 20200122
  Serious: Yes (Hospitalization, Other)
  Sender: FDA-Public Use
  Company Number: US-ACTELION-A-NJ2019-196226

PATIENT
  Age: 78 Year
  Sex: Male
  Weight: 74.83 kg

DRUGS (15)
  1. OPSUMIT [Suspect]
     Active Substance: MACITENTAN
     Indication: PULMONARY ARTERIAL HYPERTENSION
     Dosage: 10 MG, QD
     Route: 048
     Dates: start: 20190526
  2. TOPROL XL [Concomitant]
     Active Substance: METOPROLOL SUCCINATE
     Dosage: 2.5 MG, QD
     Dates: start: 2009
  3. PEPCID [Suspect]
     Active Substance: FAMOTIDINE
     Indication: PRODUCT USED FOR UNKNOWN INDICATION
     Route: 065
  4. HUMALOG [Concomitant]
     Active Substance: INSULIN LISPRO
  5. LEXAPRO [Concomitant]
     Active Substance: ESCITALOPRAM OXALATE
  6. FOLIC ACID. [Concomitant]
     Active Substance: FOLIC ACID
     Dosage: 1 MG, QD
  7. PREDNISONE. [Concomitant]
     Active Substance: PREDNISONE
     Dosage: 10 MG, QD
  8. LANTUS [Concomitant]
     Active Substance: INSULIN GLARGINE
  9. ELIQUIS [Suspect]
     Active Substance: APIXABAN
     Dosage: 2.5 MG, QD
     Route: 065
  10. LASIX [Concomitant]
     Active Substance: FUROSEMIDE
     Dosage: 120 MG, QD
     Dates: start: 2016
  11. ELIQUIS [Suspect]
     Active Substance: APIXABAN
     Indication: DEEP VEIN THROMBOSIS
     Dosage: UNK
     Route: 065
  12. SILDENAFIL CITRATE. [Concomitant]
     Active Substance: SILDENAFIL CITRATE
     Dosage: 20 MG, BID
  13. MULTIVITAMIN [Concomitant]
     Active Substance: VITAMINS
  14. ZOSYN [Suspect]
     Active Substance: PIPERACILLIN SODIUM\TAZOBACTAM SODIUM
     Indication: PRODUCT USED FOR UNKNOWN INDICATION
     Route: 065
  15. PRILOSEC [Concomitant]
     Active Substance: OMEPRAZOLE MAGNESIUM

REACTIONS (30)
  - Abdominal pain [Recovered/Resolved]
  - Depression [Unknown]
  - Haemoglobin decreased [Unknown]
  - Alanine aminotransferase increased [Unknown]
  - Peripheral swelling [Unknown]
  - Tongue neoplasm malignant stage unspecified [Unknown]
  - Dysphagia [Unknown]
  - Transaminases increased [Recovering/Resolving]
  - Head and neck cancer [Unknown]
  - Condition aggravated [Unknown]
  - Hypotension [Unknown]
  - Blood glucose increased [Unknown]
  - Rash [Recovering/Resolving]
  - Haematocrit decreased [Unknown]
  - Red blood cell count decreased [Unknown]
  - Cholelithiasis [Recovered/Resolved]
  - Cholecystitis [Not Recovered/Not Resolved]
  - Dehydration [Unknown]
  - Asthenia [Not Recovered/Not Resolved]
  - Haemoptysis [Recovered/Resolved]
  - Thrombocytopenia [Unknown]
  - Oedema peripheral [Unknown]
  - Dyspnoea [Unknown]
  - Pancreatitis acute [Recovered/Resolved]
  - Productive cough [Unknown]
  - Blood alkaline phosphatase increased [Unknown]
  - Cholecystectomy [Recovered/Resolved]
  - Deep vein thrombosis [Unknown]
  - Iron deficiency anaemia [Unknown]
  - Lipase decreased [Unknown]

NARRATIVE: CASE EVENT DATE: 20190816
